FAERS Safety Report 5937862-2 (Version None)
Quarter: 2008Q4

REPORT INFORMATION
  Report Type: 
  Country: None (occurrence: None)
  Receive Date: 20081031
  Receipt Date: 20081023
  Transmission Date: 20090506
  Serious: Yes (Other)
  Sender: FDA-Public Use
  Company Number: FR-PFIZER INC-2008090124

PATIENT
  Age: 44 Year
  Sex: Male

DRUGS (3)
  1. TAHOR [Suspect]
     Dosage: TEXT:80 MG
  2. ACETYLSALICYLIC ACID SRT [Concomitant]
  3. DRUG, UNSPECIFIED [Concomitant]

REACTIONS (2)
  - CELL DEATH [None]
  - TRANSAMINASES INCREASED [None]
